FAERS Safety Report 19478090 (Version 1)
Quarter: 2021Q2

REPORT INFORMATION
  Report Type: Spontaneous
  Country: US (occurrence: US)
  Receive Date: 20210630
  Receipt Date: 20210630
  Transmission Date: 20210717
  Serious: Yes (Other)
  Sender: FDA-Public Use
  Company Number: US-STRIDES ARCOLAB LIMITED-2021SP007006

PATIENT
  Age: 72 Year
  Sex: Female

DRUGS (9)
  1. CYCLOPHOSPHAMIDE. [Suspect]
     Active Substance: CYCLOPHOSPHAMIDE
     Indication: TRIPLE HIT LYMPHOMA
     Dosage: UNK, CYCLICAL; 6 CYCLES
     Route: 065
  2. DOXORUBICIN [Suspect]
     Active Substance: DOXORUBICIN
     Indication: TRIPLE HIT LYMPHOMA
     Dosage: UNK, CYCLICAL; 6 CYCLES
     Route: 065
  3. ETOPOSIDE. [Suspect]
     Active Substance: ETOPOSIDE
     Indication: TRIPLE HIT LYMPHOMA
     Dosage: UNK, CYCLICAL; 6 CYCLES
     Route: 065
  4. METHOTREXATE. [Suspect]
     Active Substance: METHOTREXATE
     Indication: TRIPLE HIT LYMPHOMA
     Dosage: UNK, CYCLICAL; 6 CYCLES
     Route: 037
  5. RITUXIMAB. [Suspect]
     Active Substance: RITUXIMAB
     Indication: TRIPLE HIT LYMPHOMA
     Dosage: UNK, CYCLICAL; 6 CYCLES
     Route: 065
  6. VINCRISTINE [Suspect]
     Active Substance: VINCRISTINE
     Dosage: REDUCED BY 25% AFTER THE FOURTH CYCLE
     Route: 065
  7. PREDNISOLONE. [Suspect]
     Active Substance: PREDNISOLONE
     Indication: TRIPLE HIT LYMPHOMA
     Dosage: UNK, CYCLICAL; 6 CYCLES
     Route: 065
  8. VINCRISTINE [Suspect]
     Active Substance: VINCRISTINE
     Indication: TRIPLE HIT LYMPHOMA
     Dosage: UNK, CYCLICAL; 6 CYCLES
     Route: 065
  9. VENETOCLAX. [Suspect]
     Active Substance: VENETOCLAX
     Indication: TRIPLE HIT LYMPHOMA
     Dosage: 600 MILLIGRAM,DAILY FOR 5 DAYS DURING CYCLES 2, 3 AND 4
     Route: 065

REACTIONS (7)
  - Gastrooesophageal reflux disease [Recovered/Resolved]
  - Peripheral motor neuropathy [Unknown]
  - Alopecia [Unknown]
  - Nausea [Unknown]
  - Decreased appetite [Recovered/Resolved]
  - Neuropathy peripheral [Not Recovered/Not Resolved]
  - Vocal cord paralysis [Recovered/Resolved]
